FAERS Safety Report 4497134-2 (Version None)
Quarter: 2004Q4

REPORT INFORMATION
  Report Type: 
  Country: None (occurrence: None)
  Receive Date: 20041110
  Receipt Date: 20041022
  Transmission Date: 20050328
  Serious: Yes (Death, Other)
  Sender: FDA-Public Use
  Company Number: MX-ABBOTT-04P-107-0278530-00

PATIENT
  Age: 8 Year
  Weight: 25 kg

DRUGS (10)
  1. SEVORANE LIQUID FOR INHALATION [Suspect]
     Indication: ANAESTHESIA
     Route: 055
  2. ATROPINE [Suspect]
     Indication: ANAESTHESIA
  3. FENTANYL [Suspect]
     Indication: ANAESTHESIA
  4. KETOROLAC [Suspect]
     Indication: ANAESTHESIA
  5. NALBUPHINE [Suspect]
     Indication: ANAESTHESIA
  6. HYDROCORTISONE [Suspect]
     Indication: DRUG USE FOR UNKNOWN INDICATION
  7. DEXAMETHASONE [Concomitant]
     Indication: DRUG USE FOR UNKNOWN INDICATION
     Route: 042
     Dates: start: 20030617
  8. THIOPENTAL SODIUM [Concomitant]
     Dates: start: 20030617, end: 20030617
  9. THIOPENTAL SODIUM [Concomitant]
     Dates: start: 20030617, end: 20030617
  10. THIOPENTAL SODIUM [Concomitant]

REACTIONS (25)
  - AREFLEXIA [None]
  - BLOOD METHANOL INCREASED [None]
  - BLOOD PRESSURE DECREASED [None]
  - BRAIN DEATH [None]
  - BRAIN OEDEMA [None]
  - BRAIN STEM SYNDROME [None]
  - CORNEAL REFLEX DECREASED [None]
  - CYANOSIS [None]
  - GLASGOW COMA SCALE ABNORMAL [None]
  - GRAND MAL CONVULSION [None]
  - HAEMODYNAMIC INSTABILITY [None]
  - HAEMORRHAGE INTRACRANIAL [None]
  - HEART RATE INCREASED [None]
  - HYPERTENSION [None]
  - LOSS OF CONSCIOUSNESS [None]
  - MEDICATION ERROR [None]
  - METABOLIC ACIDOSIS [None]
  - MULTIPLE DRUG OVERDOSE [None]
  - MUSCLE CONTRACTURE [None]
  - MYDRIASIS [None]
  - OXYGEN SATURATION DECREASED [None]
  - PYREXIA [None]
  - RENAL FAILURE [None]
  - RESPIRATORY DISORDER [None]
  - RESPIRATORY FAILURE [None]
